FAERS Safety Report 4967774-2 (Version None)
Quarter: 2006Q2

REPORT INFORMATION
  Report Type: 
  Country: None (occurrence: None)
  Receive Date: 20060404
  Receipt Date: 20060323
  Transmission Date: 20061013
  Serious: No
  Sender: FDA-Public Use
  Company Number: 2006-140025-NL

PATIENT
  Age: 37 Year
  Sex: Female

DRUGS (7)
  1. VECURONIUM BROMIDE [Suspect]
     Indication: ANAESTHESIA
     Dosage: 4 MG ONCE
     Dates: start: 20060315, end: 20060315
  2. PROPOFOL [Concomitant]
  3. SEVOFLURANE [Concomitant]
  4. NITROUS OXIDE W/ OXYGEN [Concomitant]
  5. ROPIVACAINE [Concomitant]
  6. ATROPINE SULFATE [Concomitant]
  7. HYDROXYZINE HYDROCHLORIDE [Concomitant]

REACTIONS (3)
  - BRONCHOSPASM [None]
  - OXYGEN SATURATION DECREASED [None]
  - PROCEDURAL COMPLICATION [None]
